FAERS Safety Report 11592988 (Version 4)
Quarter: 2016Q1

REPORT INFORMATION
  Report Type: Spontaneous
  Country: IT (occurrence: IT)
  Receive Date: 20151005
  Receipt Date: 20160324
  Transmission Date: 20160525
  Serious: Yes (Other)
  Sender: FDA-Public Use
  Company Number: IT-EISAI MEDICAL RESEARCH-EC-2015-010910

PATIENT
  Age: 48 Year
  Sex: Female
  Weight: 104 kg

DRUGS (5)
  1. ONDANSETRONE HIKMA [Concomitant]
     Active Substance: ONDANSETRON
     Indication: PREMEDICATION
     Route: 042
     Dates: start: 20150908, end: 20150908
  2. HALAVEN [Suspect]
     Active Substance: ERIBULIN MESYLATE
     Indication: BREAST CANCER
     Route: 040
     Dates: start: 20150908, end: 20150908
  3. PANTORC [Concomitant]
     Active Substance: PANTOPRAZOLE SODIUM
     Indication: PREMEDICATION
     Route: 042
     Dates: start: 20150908, end: 20150908
  4. HALAVEN [Suspect]
     Active Substance: ERIBULIN MESYLATE
     Route: 040
     Dates: start: 20150929, end: 20160316
  5. FLEBOCORTID RICHTER [Concomitant]
     Indication: PREMEDICATION
     Route: 042
     Dates: start: 20150908, end: 20150908

REACTIONS (4)
  - Hepatotoxicity [Unknown]
  - Neutropenia [Recovered/Resolved]
  - Leukopenia [Unknown]
  - Lymphopenia [Recovered/Resolved]

NARRATIVE: CASE EVENT DATE: 20150915
